FAERS Safety Report 9128166 (Version 1)
Quarter: 2013Q1

REPORT INFORMATION
  Report Type: Spontaneous
  Country: US (occurrence: US)
  Receive Date: 20130125
  Receipt Date: 20130125
  Transmission Date: 20140127
  Serious: No
  Sender: FDA-Public Use
  Company Number: US-VERTEX PHARMACEUTICALS INC.-2013-001125

PATIENT
  Sex: Female
  Weight: 68 kg

DRUGS (6)
  1. INCIVEK [Suspect]
     Indication: HEPATITIS C
     Dosage: 750 MG, TID
     Route: 048
     Dates: start: 201210
  2. RIBASPHERE [Suspect]
     Indication: HEPATITIS C
     Dosage: 400 MG IN AM AND 600 MG IN PM
     Route: 048
     Dates: start: 201210
  3. PEGASYS [Suspect]
     Indication: HEPATITIS C
     Dosage: 180 ?G, QW
     Route: 058
     Dates: start: 201210
  4. NORCO [Concomitant]
  5. AMBIEN [Concomitant]
     Dosage: 10 MG, PRN
     Route: 048
  6. PROZAC [Concomitant]
     Dosage: 40 MG, QD
     Route: 048

REACTIONS (3)
  - Inappropriate schedule of drug administration [Recovered/Resolved]
  - Vomiting [Recovered/Resolved]
  - Nausea [Recovered/Resolved]
